FAERS Safety Report 9958487 (Version 1)
Quarter: 2014Q1

REPORT INFORMATION
  Report Type: Spontaneous
  Country: US (occurrence: US)
  Receive Date: 20140305
  Receipt Date: 20140305
  Transmission Date: 20141002
  Serious: No
  Sender: FDA-Public Use
  Company Number: US-BIOGENIDEC-2014BI020246

PATIENT
  Sex: Female

DRUGS (2)
  1. AVONEX [Suspect]
     Indication: MULTIPLE SCLEROSIS
     Route: 030
     Dates: start: 20120505, end: 20130511
  2. AUBAGIO [Concomitant]
     Dates: end: 201401

REACTIONS (2)
  - Adverse drug reaction [Recovered/Resolved]
  - Feeling abnormal [Not Recovered/Not Resolved]
